FAERS Safety Report 26138965 (Version 1)
Quarter: 2025Q4

REPORT INFORMATION
  Report Type: Spontaneous
  Country: CN (occurrence: CN)
  Receive Date: 20251210
  Receipt Date: 20251210
  Transmission Date: 20260118
  Serious: Yes (Hospitalization)
  Sender: BAXTER
  Company Number: None

PATIENT
  Age: 58 Year
  Sex: Male

DRUGS (10)
  1. CYCLOPHOSPHAMIDE [Suspect]
     Active Substance: CYCLOPHOSPHAMIDE
     Indication: T-cell lymphoma
     Dosage: 0.300000 G, BID
     Route: 041
     Dates: start: 20250813, end: 20250815
  2. MESNA [Suspect]
     Active Substance: MESNA
     Dosage: 1 G, TID
     Route: 065
     Dates: start: 20250813, end: 20250815
  3. EPIRUBICIN HYDROCHLORIDE [Suspect]
     Active Substance: EPIRUBICIN HYDROCHLORIDE
     Indication: T-cell lymphoma
     Dosage: 30.000000 MG, QD
     Route: 041
     Dates: start: 20250816, end: 20250818
  4. VINCRISTINE SULFATE [Suspect]
     Active Substance: VINCRISTINE SULFATE
     Indication: T-cell lymphoma
     Dosage: 2.000000 MG, QD
     Route: 041
     Dates: start: 20250813, end: 20250813
  5. VINCRISTINE SULFATE [Suspect]
     Active Substance: VINCRISTINE SULFATE
     Dosage: 2 MG
     Route: 065
     Dates: start: 20250902
  6. DEXAMETHASONE [Concomitant]
     Active Substance: DEXAMETHASONE
     Dosage: 40 MG
     Route: 065
     Dates: start: 20250813, end: 20250816
  7. DEXAMETHASONE [Concomitant]
     Active Substance: DEXAMETHASONE
     Dosage: 40 MG
     Route: 065
     Dates: start: 20250822, end: 20250826
  8. GRANULOCYTE COLONY-STIMULATING FACTOR NOS [Concomitant]
     Active Substance: GRANULOCYTE COLONY-STIMULATING FACTOR NOS
     Indication: Symptomatic treatment
     Dosage: UNK
     Route: 065
     Dates: start: 20250820
  9. Human interleukin-11 [Concomitant]
     Indication: Symptomatic treatment
     Dosage: UNK
     Route: 065
     Dates: start: 20250820
  10. Human erythropoietin [Concomitant]
     Indication: Symptomatic treatment
     Dosage: UNK
     Route: 065
     Dates: start: 20250820

REACTIONS (3)
  - White blood cell count decreased [Recovered/Resolved]
  - Neutrophil count decreased [Recovered/Resolved]
  - Platelet count decreased [Recovered/Resolved]

NARRATIVE: CASE EVENT DATE: 20250823
